FAERS Safety Report 5656571-0 (Version None)
Quarter: 2008Q1

REPORT INFORMATION
  Report Type: 
  Country: None (occurrence: None)
  Receive Date: 20080310
  Receipt Date: 20080225
  Transmission Date: 20080703
  Serious: Yes (Other)
  Sender: FDA-Public Use
  Company Number: US-JNJFOC-20080301216

PATIENT
  Sex: Female
  Weight: 58.97 kg

DRUGS (6)
  1. MOTRIN [Suspect]
     Route: 048
  2. MOTRIN [Suspect]
     Indication: ARTHRITIS
     Route: 048
  3. CELEBREX [Suspect]
     Indication: ARTHRITIS
  4. IBUPROFEN [Suspect]
     Indication: ARTHRITIS
  5. CHOLESTEROL MEDICATION [Concomitant]
  6. BLOOD PRESSURE MEDICATION [Concomitant]
     Indication: BLOOD PRESSURE ABNORMAL

REACTIONS (1)
  - BREAST CANCER [None]
